FAERS Safety Report 4467806-4 (Version None)
Quarter: 2004Q4

REPORT INFORMATION
  Report Type: 
  Country: None (occurrence: None)
  Receive Date: 20041001
  Receipt Date: 20040916
  Transmission Date: 20050328
  Serious: No
  Sender: FDA-Public Use
  Company Number: 2004AP04909

PATIENT
  Age: 80 Year
  Sex: Female

DRUGS (7)
  1. IRESSA [Suspect]
     Indication: LUNG SQUAMOUS CELL CARCINOMA STAGE UNSPECIFIED
     Dosage: 250 MG DAILY PO
     Route: 048
     Dates: start: 20040526, end: 20040709
  2. CLARITH [Suspect]
     Indication: BRONCHITIS
     Dosage: 400 MG DAILY PO
     Route: 048
     Dates: start: 20040601, end: 20040709
  3. BIOFERMIN R [Concomitant]
  4. GLIMICRON [Concomitant]
  5. GRANDAXIN [Concomitant]
  6. JUVELA NICOTINATE [Concomitant]
  7. DEPAS [Concomitant]

REACTIONS (6)
  - ALANINE AMINOTRANSFERASE INCREASED [None]
  - ASPARTATE AMINOTRANSFERASE INCREASED [None]
  - EOSINOPHIL COUNT INCREASED [None]
  - HEPATIC FUNCTION ABNORMAL [None]
  - PRURITUS [None]
  - RASH [None]
